FAERS Safety Report 6932599-5 (Version None)
Quarter: 2010Q3

REPORT INFORMATION
  Report Type: 
  Country: None (occurrence: None)
  Receive Date: 20100817
  Receipt Date: 20100803
  Transmission Date: 20110219
  Serious: Yes (Other)
  Sender: FDA-Public Use
  Company Number: 2010AC000071

PATIENT
  Age: 77 Year
  Sex: Female

DRUGS (17)
  1. DIGOXIN [Suspect]
     Dosage: PO
     Route: 048
     Dates: start: 20050525, end: 20080801
  2. DIGOXIN [Suspect]
     Dates: start: 20010101
  3. DIGOXIN [Suspect]
     Dosage: 0.25 MG; QD; PO
     Route: 048
     Dates: start: 20060101
  4. DIGOXIN [Suspect]
     Dosage: 0.125 MG; QD; PO
     Route: 048
     Dates: start: 20061001
  5. DIGOXIN [Suspect]
     Dosage: 0.25 MG; QD; PO
     Route: 048
     Dates: start: 20050525, end: 20061001
  6. DIGOXIN [Suspect]
     Dosage: 0.25 MG; QD; PO
     Route: 048
     Dates: start: 20070123, end: 20080501
  7. DIGOXIN [Suspect]
     Dosage: PO
     Route: 048
     Dates: start: 20080513, end: 20100101
  8. SEPTRA [Concomitant]
  9. DIFLUCAN [Concomitant]
  10. VALTREX [Concomitant]
  11. LOTRISONE [Concomitant]
  12. FLAGYL [Concomitant]
  13. CIPRO [Concomitant]
  14. XANAX [Concomitant]
  15. RELAFEN [Concomitant]
  16. FOSINOPRIL SODIUM [Concomitant]
  17. CELEXA [Concomitant]

REACTIONS (32)
  - ABDOMINAL PAIN LOWER [None]
  - ANXIETY [None]
  - ARTHRALGIA [None]
  - BLINDNESS [None]
  - CONFUSIONAL STATE [None]
  - DEPRESSION [None]
  - DIVERTICULITIS [None]
  - DIZZINESS [None]
  - DYSPNOEA [None]
  - ECONOMIC PROBLEM [None]
  - EMOTIONAL DISORDER [None]
  - FATIGUE [None]
  - GASTROINTESTINAL DISORDER [None]
  - HYPOAESTHESIA [None]
  - HYPOTENSION [None]
  - INJURY [None]
  - MENTAL DISORDER [None]
  - NAUSEA [None]
  - OEDEMA PERIPHERAL [None]
  - ORAL HERPES [None]
  - OROPHARYNGEAL BLISTERING [None]
  - PAIN IN EXTREMITY [None]
  - PANIC ATTACK [None]
  - RASH PRURITIC [None]
  - SINUSITIS [None]
  - STOMATITIS [None]
  - SWELLING FACE [None]
  - THERAPEUTIC AGENT TOXICITY [None]
  - THINKING ABNORMAL [None]
  - URINARY TRACT INFECTION [None]
  - URTICARIA [None]
  - VISUAL IMPAIRMENT [None]
